FAERS Safety Report 22537092 (Version 1)
Quarter: 2023Q2

REPORT INFORMATION
  Report Type: Spontaneous
  Country: US (occurrence: None)
  Receive Date: 20230607
  Receipt Date: 20230607
  Transmission Date: 20230722
  Serious: Yes (Hospitalization)
  Sender: FDA-Public Use
  Company Number: None

PATIENT
  Age: 17 Year
  Sex: Female

DRUGS (3)
  1. BOSENTAN [Suspect]
     Active Substance: BOSENTAN
     Indication: Pulmonary arterial hypertension
     Dosage: FREQUENCY : TWICE A DAY;?
     Route: 048
     Dates: start: 202207
  2. SILDENAFIL [Suspect]
     Active Substance: SILDENAFIL
  3. UPTRAVI [Suspect]
     Active Substance: SELEXIPAG

REACTIONS (2)
  - Dyspnoea [None]
  - Syncope [None]

NARRATIVE: CASE EVENT DATE: 20230603
